FAERS Safety Report 15814766 (Version 1)
Quarter: 2019Q1

REPORT INFORMATION
  Report Type: Spontaneous
  Country: GR (occurrence: GR)
  Receive Date: 20190111
  Receipt Date: 20190111
  Transmission Date: 20190417
  Serious: Yes (Death, Other)
  Sender: FDA-Public Use
  Company Number: GR-MYLANLABS-2019M1002589

PATIENT
  Age: 82 Year

DRUGS (6)
  1. METHOTREXATE. [Suspect]
     Active Substance: METHOTREXATE
     Indication: PRODUCT USED FOR UNKNOWN INDICATION
     Dosage: 15 MILLIGRAM, QW
  2. METHYLPREDNISOLONE SODIUM SUCCINATE. [Suspect]
     Active Substance: METHYLPREDNISOLONE SODIUM SUCCINATE
     Indication: TEMPORAL ARTERITIS
     Dosage: 3 GRAM, QD (1 G, 3X/DAY)
     Route: 042
  3. SALOSPIR [Suspect]
     Active Substance: ASPIRIN
     Indication: TEMPORAL ARTERITIS
     Dosage: 100 MILLIGRAM, QD
  4. LINEZOLID. [Suspect]
     Active Substance: LINEZOLID
     Indication: PNEUMONIA
     Dosage: UNK
  5. PREDNISOLONE. [Suspect]
     Active Substance: PREDNISOLONE
     Indication: TEMPORAL ARTERITIS
     Dosage: 75 MILLIGRAM, QD
     Route: 042
  6. METHYLPREDNISOLONE. [Suspect]
     Active Substance: METHYLPREDNISOLONE
     Indication: TEMPORAL ARTERITIS
     Dosage: 16 MILLIGRAM, TID (16 MG, X 3 (2-1-0))
     Route: 048

REACTIONS (4)
  - Myopathy [Unknown]
  - Neutropenia [Unknown]
  - Sepsis [Fatal]
  - Pneumonia [Unknown]
